FAERS Safety Report 22363763 (Version 4)
Quarter: 2024Q2

REPORT INFORMATION
  Report Type: Other
  Country: CA (occurrence: CA)
  Receive Date: 20230525
  Receipt Date: 20240409
  Transmission Date: 20240716
  Serious: Yes (Hospitalization, Other)
  Sender: FDA-Public Use
  Company Number: CA-INTERCEPT-PM2022000697

PATIENT
  Age: 53 Year
  Sex: Female

DRUGS (5)
  1. OCALIVA [Suspect]
     Active Substance: OBETICHOLIC ACID
     Indication: Primary biliary cholangitis
     Dosage: 5 MG, QD
     Route: 048
     Dates: start: 20210723
  2. OCALIVA [Suspect]
     Active Substance: OBETICHOLIC ACID
     Dosage: 10 MG, QD
     Route: 048
     Dates: start: 202206
  3. URSODIOL [Concomitant]
     Active Substance: URSODIOL
     Dosage: 1000 MG, QD
     Dates: start: 2016
  4. CLOPIDOGREL [Concomitant]
     Active Substance: CLOPIDOGREL BISULFATE
     Indication: Anticoagulant therapy
     Dosage: UNK
  5. ASPIRIN [Concomitant]
     Active Substance: ASPIRIN
     Indication: Stent placement
     Dosage: UNK UNK, QD

REACTIONS (12)
  - Pain [Unknown]
  - Diabetic foot infection [Recovering/Resolving]
  - Hepatic failure [Unknown]
  - Back pain [Not Recovered/Not Resolved]
  - Illness [Not Recovered/Not Resolved]
  - Wheelchair user [Recovering/Resolving]
  - Weight decreased [Unknown]
  - Bilirubin conjugated abnormal [Unknown]
  - Gamma-glutamyltransferase abnormal [Unknown]
  - Blood alkaline phosphatase increased [Recovering/Resolving]
  - Jaundice [Unknown]
  - Product dose omission issue [Unknown]

NARRATIVE: CASE EVENT DATE: 20230417
